FAERS Safety Report 6297560-5 (Version None)
Quarter: 2009Q3

REPORT INFORMATION
  Report Type: 
  Country: None (occurrence: None)
  Receive Date: 20090805
  Receipt Date: 20090729
  Transmission Date: 20100115
  Serious: Yes (Hospitalization)
  Sender: FDA-Public Use
  Company Number: FR-ASTRAZENECA-2009SE06446

PATIENT
  Age: 21321 Day
  Sex: Male

DRUGS (3)
  1. NEXIUM [Suspect]
     Route: 048
     Dates: end: 20090609
  2. ESPERAL [Suspect]
     Route: 048
     Dates: end: 20090609
  3. EQUANIL [Suspect]
     Route: 048
     Dates: end: 20090609

REACTIONS (1)
  - CONVULSION [None]
